FAERS Safety Report 6844753-1 (Version None)
Quarter: 2010Q3

REPORT INFORMATION
  Report Type: 
  Country: None (occurrence: None)
  Receive Date: 20100715
  Receipt Date: 20100713
  Transmission Date: 20110219
  Serious: Yes (Death, Other)
  Sender: FDA-Public Use
  Company Number: US-BRISTOL-MYERS SQUIBB COMPANY-15190903

PATIENT

DRUGS (1)
  1. ORENCIA [Suspect]

REACTIONS (3)
  - COCCIDIOIDOMYCOSIS [None]
  - DEATH [None]
  - HERPES VIRUS INFECTION [None]
